FAERS Safety Report 6968684-1 (Version None)
Quarter: 2010Q3

REPORT INFORMATION
  Report Type: 
  Country: None (occurrence: None)
  Receive Date: 20100907
  Receipt Date: 20100804
  Transmission Date: 20110219
  Serious: No
  Sender: FDA-Public Use
  Company Number: US-BAYER-201019358BCC

PATIENT
  Age: 22 Year
  Sex: Female
  Weight: 54 kg

DRUGS (3)
  1. ALEVE (CAPLET) [Suspect]
     Indication: UTERINE PAIN
     Dosage: TOTAL DAILY DOSE: 220 MG  UNIT DOSE: 220 MG
     Route: 048
     Dates: start: 20100804
  2. MIDOL MENSTRUAL COMPLETE CAPLETS [Suspect]
     Indication: UTERINE PAIN
     Dosage: TOTAL DAILY DOSE: 2 DF
     Route: 048
     Dates: start: 20100804
  3. UNKNOWN DRUG [Concomitant]
     Indication: SLEEP DISORDER THERAPY
     Route: 065

REACTIONS (2)
  - FEELING JITTERY [None]
  - UTERINE PAIN [None]
